FAERS Safety Report 20292069 (Version 2)
Quarter: 2022Q2

REPORT INFORMATION
  Report Type: Spontaneous
  Country: US (occurrence: US)
  Receive Date: 20220104
  Receipt Date: 20220414
  Transmission Date: 20220720
  Serious: No
  Sender: FDA-Public Use
  Company Number: US-PFIZER INC-202101700084

PATIENT
  Age: 77 Year
  Sex: Female

DRUGS (2)
  1. IBRANCE [Suspect]
     Active Substance: PALBOCICLIB
     Indication: Breast cancer female
     Dosage: UNK
     Dates: end: 20211124
  2. IBRANCE [Suspect]
     Active Substance: PALBOCICLIB
     Dosage: 125 MG
     Dates: start: 20211123

REACTIONS (10)
  - Pruritus [Unknown]
  - White blood cell count decreased [Unknown]
  - Product dose omission issue [Unknown]
  - Aphthous ulcer [Unknown]
  - Fatigue [Unknown]
  - Fatigue [Recovered/Resolved]
  - Dry skin [Unknown]
  - Red blood cell count decreased [Unknown]
  - Muscular weakness [Unknown]
  - Dry mouth [Unknown]
